FAERS Safety Report 6332323-3 (Version None)
Quarter: 2009Q3

REPORT INFORMATION
  Report Type: 
  Country: None (occurrence: None)
  Receive Date: 20090828
  Receipt Date: 20090826
  Transmission Date: 20100115
  Serious: Yes (Death, Other)
  Sender: FDA-Public Use
  Company Number: PHHY2008CA13744

PATIENT
  Sex: Female

DRUGS (4)
  1. SANDOSTATIN LAR [Suspect]
     Indication: CARCINOID TUMOUR
     Dosage: 20 MG EVERY FOUR WEEKS
     Route: 030
     Dates: start: 20041104
  2. SANDOSTATIN LAR [Suspect]
     Dosage: 30 MG, QMO
     Route: 030
     Dates: start: 20080709
  3. SANDOSTATIN LAR [Suspect]
     Dosage: 40 MG EVERY 4 WEEKS
     Route: 030
     Dates: end: 20090611
  4. LASIX [Concomitant]

REACTIONS (16)
  - APPETITE DISORDER [None]
  - ASTHENIA [None]
  - CARDIAC VALVE DISEASE [None]
  - DEATH [None]
  - DECREASED ACTIVITY [None]
  - DIARRHOEA [None]
  - DIZZINESS [None]
  - DYSPEPSIA [None]
  - DYSPNOEA [None]
  - FLUSHING [None]
  - HYPOTENSION [None]
  - NASAL DISCOMFORT [None]
  - OEDEMA PERIPHERAL [None]
  - PALLOR [None]
  - PALPITATIONS [None]
  - WEIGHT DECREASED [None]
